FAERS Safety Report 25157263 (Version 1)
Quarter: 2025Q2

REPORT INFORMATION
  Report Type: Spontaneous
  Country: US (occurrence: US)
  Receive Date: 20250403
  Receipt Date: 20250403
  Transmission Date: 20250717
  Serious: Yes (Other)
  Sender: COOPERSURGICAL
  Company Number: US-COOPERSURGICAL, INC.-2025CPS002409

PATIENT
  Age: 23 Year
  Sex: Female
  Weight: 90.249 kg

DRUGS (1)
  1. PARAGARD T 380A [Suspect]
     Active Substance: COPPER
     Route: 015
     Dates: start: 20160216

REACTIONS (17)
  - Infertility female [Not Recovered/Not Resolved]
  - Reproductive complication associated with device [Unknown]
  - Ovarian disorder [Unknown]
  - Device breakage [Unknown]
  - Abortion spontaneous [Recovered/Resolved]
  - Uterine haemorrhage [Not Recovered/Not Resolved]
  - Abdominal pain upper [Not Recovered/Not Resolved]
  - Mental disorder [Not Recovered/Not Resolved]
  - Emotional distress [Not Recovered/Not Resolved]
  - Anxiety [Not Recovered/Not Resolved]
  - Depression [Unknown]
  - Sexual dysfunction [Unknown]
  - Emotional disorder [Unknown]
  - Ovarian atrophy [Unknown]
  - Pain [Unknown]
  - Menstrual disorder [Unknown]
  - Device expulsion [Recovered/Resolved]

NARRATIVE: CASE EVENT DATE: 20160601
